FAERS Safety Report 14486496 (Version 3)
Quarter: 2018Q2

REPORT INFORMATION
  Report Type: Spontaneous
  Country: US (occurrence: US)
  Receive Date: 20180205
  Receipt Date: 20180521
  Transmission Date: 20180711
  Serious: Yes (Death, Hospitalization, Other)
  Sender: FDA-Public Use
  Company Number: US-AMGEN-USASP2018000750

PATIENT
  Age: 74 Year
  Sex: Male
  Weight: 63.49 kg

DRUGS (9)
  1. CARBO [Concomitant]
     Indication: BLADDER CANCER
     Dosage: UNK UNK, CYCLICAL
     Dates: start: 20171211, end: 20180129
  2. NEULASTA [Suspect]
     Active Substance: PEGFILGRASTIM
     Indication: NEUTROPENIA
     Dosage: 6 MG, Q3WK
     Route: 058
     Dates: start: 201801
  3. ETOPOSIDE. [Concomitant]
     Active Substance: ETOPOSIDE
     Indication: BLADDER CANCER
     Dosage: 136 MG, (AT 79.3103 MG/M2)(ONCE SHORT OVER 1 HOURS) CYCLICAL
     Route: 042
     Dates: start: 20171211, end: 20180129
  4. ONDANSETRON HCL [Concomitant]
     Active Substance: ONDANSETRON HYDROCHLORIDE
     Dosage: 8 MG, OF 4 MG/2ML) INJECTION DAILY SHORT OVER 20 MINUTES FOR 1 DAY IN NS 100 ML
     Dates: start: 20180104, end: 20180104
  5. HEPARIN LOCK FLUSH [Concomitant]
     Active Substance: HEPARIN SODIUM
     Dosage: 500 UNITS/ML (OF 100 UNITS/ML), UNK
     Dates: start: 20180104, end: 20180104
  6. NEULASTA [Suspect]
     Active Substance: PEGFILGRASTIM
     Dosage: 6 MG, Q3WK
     Route: 058
  7. NEULASTA [Suspect]
     Active Substance: PEGFILGRASTIM
     Dosage: 6 MG, Q3WK
     Route: 058
     Dates: end: 20180115
  8. CARBO [Concomitant]
     Indication: PROSTATE CANCER
  9. SODIUM CHLORIDE. [Concomitant]
     Active Substance: SODIUM CHLORIDE
     Dosage: 100 ML, UNK (ONCE INTERMITTENT)
     Route: 042
     Dates: start: 20180104, end: 20180104

REACTIONS (4)
  - Failure to thrive [Unknown]
  - Intercepted medication error [Unknown]
  - Death [Fatal]
  - Malignant neoplasm progression [Unknown]

NARRATIVE: CASE EVENT DATE: 20180102
